FAERS Safety Report 5710014-7 (Version None)
Quarter: 2008Q2

REPORT INFORMATION
  Report Type: 
  Country: None (occurrence: None)
  Receive Date: 20080418
  Receipt Date: 20080407
  Transmission Date: 20081010
  Serious: Yes (Other)
  Sender: FDA-Public Use
  Company Number: US-PFIZER INC-2006085238

PATIENT
  Sex: Female

DRUGS (7)
  1. CELEBREX [Interacting]
     Indication: COSTOCHONDRITIS
     Route: 048
  2. CELEBREX [Interacting]
     Indication: ARTHRALGIA
  3. DAYPRO [Suspect]
  4. CARDIOLITE [Interacting]
     Indication: INVESTIGATION
  5. INDOMETHACIN [Suspect]
  6. PARAFON FORTE [Suspect]
  7. VOLTAREN [Suspect]

REACTIONS (4)
  - CHEST PAIN [None]
  - DRUG INTERACTION [None]
  - NEOPLASM [None]
  - NEURODERMATITIS [None]
